FAERS Safety Report 6793569-3 (Version None)
Quarter: 2010Q2

REPORT INFORMATION
  Report Type: 
  Country: None (occurrence: None)
  Receive Date: 20100624
  Receipt Date: 20090224
  Transmission Date: 20101027
  Serious: No
  Sender: FDA-Public Use
  Company Number: US-PFIZER INC-2008151696

PATIENT
  Sex: Female
  Weight: 74.83 kg

DRUGS (3)
  1. PROCARDIA [Suspect]
     Indication: HYPERTENSION
     Dosage: 60 MG, 1X/DAY
     Route: 048
     Dates: start: 20080101
  2. ZESTRIL [Concomitant]
     Dosage: 40 MG, 1X/DAY
  3. METOPROLOL [Concomitant]
     Dosage: UNK

REACTIONS (2)
  - BLOOD PRESSURE INCREASED [None]
  - DRUG DOSE OMISSION [None]
